FAERS Safety Report 7680396-8 (Version None)
Quarter: 2011Q3

REPORT INFORMATION
  Report Type: 
  Country: None (occurrence: None)
  Receive Date: 20110812
  Receipt Date: 20110804
  Transmission Date: 20111222
  Serious: Yes (Hospitalization)
  Sender: FDA-Public Use
  Company Number: US-BAYER-2011-023422

PATIENT
  Age: 52 Year
  Sex: Female
  Weight: 56.236 kg

DRUGS (8)
  1. GARLIC [Concomitant]
  2. EXCEDRIN ASPIRIN FREE [Concomitant]
  3. ALLERGY MEDICATION [Concomitant]
  4. YASMIN [Suspect]
     Indication: PREMENSTRUAL SYNDROME
  5. YASMIN [Suspect]
     Indication: CONTRACEPTION
     Dosage: UNK, QD
     Dates: start: 20000101, end: 20060101
  6. YASMIN [Suspect]
     Indication: MENSTRUAL DISORDER
  7. ADVIL LIQUI-GELS [Concomitant]
  8. YASMIN [Suspect]
     Indication: MENORRHAGIA

REACTIONS (4)
  - PLEURISY [None]
  - FATIGUE [None]
  - PULMONARY EMBOLISM [None]
  - DYSPNOEA [None]
